FAERS Safety Report 10279342 (Version 2)
Quarter: 2014Q3

REPORT INFORMATION
  Report Type: Spontaneous
  Country: FR (occurrence: FR)
  Receive Date: 20140707
  Receipt Date: 20140715
  Transmission Date: 20150326
  Serious: Yes (Hospitalization)
  Sender: FDA-Public Use
  Company Number: FR-BRISTOL-MYERS SQUIBB COMPANY-21119219

PATIENT
  Age: 49 Year
  Sex: Male

DRUGS (7)
  1. ATARAX [Suspect]
     Active Substance: HYDROXYZINE\HYDROXYZINE HYDROCHLORIDE
     Route: 048
     Dates: end: 20140516
  2. TERCIAN [Suspect]
     Active Substance: CYAMEMAZINE
     Dates: end: 20140516
  3. LEPTICUR [Suspect]
     Active Substance: TROPATEPINE HYDROCHLORIDE
     Dates: end: 20140516
  4. LAMOTRIGINE. [Concomitant]
     Active Substance: LAMOTRIGINE
  5. ABILIFY [Suspect]
     Active Substance: ARIPIPRAZOLE
     Indication: BIPOLAR DISORDER
     Route: 048
     Dates: start: 20140506, end: 20140516
  6. QUETIAPINE [Suspect]
     Active Substance: QUETIAPINE
     Indication: BIPOLAR DISORDER
     Route: 048
     Dates: start: 20140407, end: 20140516
  7. TERALITHE [Concomitant]
     Active Substance: LITHIUM CARBONATE

REACTIONS (5)
  - Confusional state [Recovered/Resolved]
  - Blood creatine phosphokinase increased [Recovered/Resolved]
  - Extrapyramidal disorder [Recovered/Resolved]
  - Dry mouth [Recovered/Resolved]
  - Mydriasis [Recovered/Resolved]

NARRATIVE: CASE EVENT DATE: 20140510
